FAERS Safety Report 10501574 (Version 1)
Quarter: 2014Q4

REPORT INFORMATION
  Report Type: Spontaneous
  Country: US (occurrence: None)
  Receive Date: 20141006
  Receipt Date: 20141006
  Transmission Date: 20150528
  Serious: Yes (Hospitalization)
  Sender: FDA-Public Use
  Company Number: None

PATIENT
  Age: 74 Year
  Sex: Male
  Weight: 68.1 kg

DRUGS (2)
  1. SERTRALINE [Suspect]
     Active Substance: SERTRALINE HYDROCHLORIDE
     Dosage: MG PO
     Route: 048
     Dates: start: 20130606, end: 20140926
  2. SERTRALINE [Suspect]
     Active Substance: SERTRALINE HYDROCHLORIDE
     Indication: DEPRESSION
     Dosage: MG PO
     Route: 048
     Dates: start: 20130606, end: 20140926

REACTIONS (2)
  - Hypovolaemia [None]
  - Inappropriate antidiuretic hormone secretion [None]

NARRATIVE: CASE EVENT DATE: 20140929
